FAERS Safety Report 10727081 (Version 1)
Quarter: 2015Q1

REPORT INFORMATION
  Report Type: Spontaneous
  Country: GB (occurrence: GB)
  Receive Date: 20150121
  Receipt Date: 20150121
  Transmission Date: 20150721
  Serious: Yes (Other)
  Sender: FDA-Public Use
  Company Number: GB-ACTAVIS-2015-00249

PATIENT
  Age: 42 Year
  Sex: Female
  Weight: 61 kg

DRUGS (4)
  1. OMEPRAZOLE. [Concomitant]
     Active Substance: OMEPRAZOLE
     Indication: DYSPEPSIA
     Dosage: UNK
     Route: 065
     Dates: start: 20141201, end: 20141209
  2. EVENING PRIMROSE OIL [Concomitant]
     Active Substance: EVENING PRIMROSE OIL
     Indication: PRODUCT USED FOR UNKNOWN INDICATION
     Dosage: UNK
     Route: 065
  3. ALOE VERA [Concomitant]
     Active Substance: ALOE VERA LEAF
     Indication: PRODUCT USED FOR UNKNOWN INDICATION
     Dosage: UNK; ALOE VERA JUICE
     Route: 065
  4. RANITIDINE (UNKNOWN) [Suspect]
     Active Substance: RANITIDINE HYDROCHLORIDE
     Indication: DYSPEPSIA
     Dosage: 300 MG, UNKNOWN
     Route: 048
     Dates: start: 20141219, end: 20141229

REACTIONS (5)
  - Pain in extremity [Unknown]
  - Hypoaesthesia [Unknown]
  - Anxiety [None]
  - Breast pain [Unknown]
  - Limb discomfort [Unknown]

NARRATIVE: CASE EVENT DATE: 20141221
